FAERS Safety Report 23903549 (Version 1)
Quarter: 2024Q2

REPORT INFORMATION
  Report Type: Spontaneous
  Country: IT (occurrence: IT)
  Receive Date: 20240527
  Receipt Date: 20240527
  Transmission Date: 20240715
  Serious: Yes (Hospitalization)
  Sender: FDA-Public Use
  Company Number: IT-EPICPHARMA-IT-2024EPCLIT00523

PATIENT
  Age: 4 Decade

DRUGS (9)
  1. OXYCODONE HYDROCHLORIDE [Suspect]
     Active Substance: OXYCODONE HYDROCHLORIDE
     Indication: Back pain
     Route: 065
     Dates: start: 202210
  2. OXYCODONE HYDROCHLORIDE [Suspect]
     Active Substance: OXYCODONE HYDROCHLORIDE
     Route: 065
     Dates: start: 202211
  3. OXYCODONE HYDROCHLORIDE [Suspect]
     Active Substance: OXYCODONE HYDROCHLORIDE
     Dosage: DAY 1 ELECTROACUPUNTURE SESSION 1  10 MG + 10 MG
     Route: 065
     Dates: start: 202302
  4. OXYCODONE HYDROCHLORIDE [Suspect]
     Active Substance: OXYCODONE HYDROCHLORIDE
     Dosage: DAY 2 ELECTROACUPUNTURE SESSION 2 10 MG + 10 MG
     Route: 065
     Dates: start: 202302
  5. OXYCODONE HYDROCHLORIDE [Suspect]
     Active Substance: OXYCODONE HYDROCHLORIDE
     Dosage: DAY 3 ELECTROACUPUNTURE SESSION 3 10 MG + 5 MG
     Route: 065
     Dates: start: 202302
  6. OXYCODONE HYDROCHLORIDE [Suspect]
     Active Substance: OXYCODONE HYDROCHLORIDE
     Dosage: DAY 4 ELECTROACUPUNTURE SESSION 4  5 MG + 5 MG
     Route: 065
     Dates: start: 202302
  7. OXYCODONE HYDROCHLORIDE [Suspect]
     Active Substance: OXYCODONE HYDROCHLORIDE
     Dosage: DAY 5 ELECTROACUPUNTURE SESSION 5
     Route: 065
     Dates: start: 202302
  8. OXYCODONE HYDROCHLORIDE [Suspect]
     Active Substance: OXYCODONE HYDROCHLORIDE
     Dosage: DAY 6 OXYCODONE 5 MG + PREGABALIN 75 MG
     Route: 065
     Dates: start: 202302
  9. CHOLECALCIFEROL [Concomitant]
     Active Substance: CHOLECALCIFEROL
     Indication: Supplementation therapy
     Route: 065

REACTIONS (1)
  - Hyperaesthesia [Recovered/Resolved]
